FAERS Safety Report 7814383-3 (Version None)
Quarter: 2011Q4

REPORT INFORMATION
  Report Type: 
  Country: None (occurrence: None)
  Receive Date: 20111014
  Receipt Date: 20111003
  Transmission Date: 20120403
  Serious: Yes (Hospitalization, Other)
  Sender: FDA-Public Use
  Company Number: PHHY2011FR88294

PATIENT
  Sex: Female
  Weight: 50 kg

DRUGS (9)
  1. POLYETHYLENE GLYCOL [Concomitant]
     Dosage: 1 DF, QD
     Dates: start: 20101101
  2. VALIUM [Suspect]
     Dosage: 1 DF, BID
  3. ZOPICLONE [Suspect]
     Dosage: 1 DF, QD
  4. AKINETON [Suspect]
     Dosage: 1 DF, QD
  5. TEGRETOL [Suspect]
  6. RISPERDAL [Suspect]
     Dosage: 4 DF, DAILY
  7. ATARAX [Suspect]
     Dosage: 25 MG, TID
  8. TRIMEPRAZINE TARTRATE [Suspect]
     Dosage: 5 MG, QD
  9. RISPERDAL [Suspect]
     Dosage: 2 MG, TID

REACTIONS (9)
  - SUBDURAL HAEMATOMA [None]
  - BRADYCARDIA [None]
  - HYPOTHERMIA [None]
  - CONFUSIONAL STATE [None]
  - COMA SCALE ABNORMAL [None]
  - EPILEPSY [None]
  - FALL [None]
  - WHITE BLOOD CELL COUNT DECREASED [None]
  - ALTERED STATE OF CONSCIOUSNESS [None]
